FAERS Safety Report 15060560 (Version 1)
Quarter: 2018Q2

REPORT INFORMATION
  Report Type: Spontaneous
  Country: US (occurrence: US)
  Receive Date: 20180605
  Receipt Date: 20180605
  Transmission Date: 20180711
  Serious: Yes (Hospitalization, Other)
  Sender: FDA-Public Use
  Company Number: None

PATIENT
  Age: 25 Year
  Sex: Male
  Weight: 118.2 kg

DRUGS (6)
  1. METFORMIN 1000MG PO BIDWM [Concomitant]
     Dates: start: 20180316, end: 20180404
  2. CLOZAPINE ODT [Suspect]
     Active Substance: CLOZAPINE
     Indication: SCHIZOAFFECTIVE DISORDER
     Route: 048
     Dates: start: 20180322, end: 20180403
  3. CLOZAPINE ODT [Suspect]
     Active Substance: CLOZAPINE
     Indication: SCHIZOAFFECTIVE DISORDER
     Route: 048
     Dates: start: 20180319, end: 20180330
  4. OLANZAPINE ODT 20 MG PO HS [Concomitant]
     Dates: start: 20180307, end: 20180323
  5. DIVALPROEX DR 1000 MG PO HS [Concomitant]
     Dates: start: 20180301, end: 20180321
  6. LORAZEPAM 1MG PO BID [Concomitant]
     Dates: start: 20180307, end: 20180402

REACTIONS (9)
  - Influenza like illness [None]
  - Nausea [None]
  - Vomiting [None]
  - Myocarditis [None]
  - Myocarditis infectious [None]
  - C-reactive protein increased [None]
  - Rhinorrhoea [None]
  - Cough [None]
  - Troponin increased [None]

NARRATIVE: CASE EVENT DATE: 20180403
